FAERS Safety Report 20486649 (Version 1)
Quarter: 2022Q1

REPORT INFORMATION
  Report Type: Spontaneous
  Country: US (occurrence: None)
  Receive Date: 20220217
  Receipt Date: 20220217
  Transmission Date: 20220424
  Serious: Yes (Life-Threatening, Hospitalization)
  Sender: FDA-Public Use
  Company Number: None

PATIENT
  Age: 84 Year
  Sex: Male

DRUGS (2)
  1. EVUSHELD [Suspect]
     Active Substance: CILGAVIMAB\TIXAGEVIMAB
     Dates: start: 20220205, end: 20220205
  2. PIRTOBRUTINIB [Concomitant]
     Active Substance: PIRTOBRUTINIB

REACTIONS (6)
  - Hypoxia [None]
  - Dyspnoea [None]
  - Lung infiltration [None]
  - Pleural effusion [None]
  - Thrombocytopenia [None]
  - Pulmonary haemorrhage [None]

NARRATIVE: CASE EVENT DATE: 20220206
